FAERS Safety Report 7341547-8 (Version None)
Quarter: 2011Q1

REPORT INFORMATION
  Report Type: 
  Country: None (occurrence: None)
  Receive Date: 20110309
  Receipt Date: 20110224
  Transmission Date: 20110831
  Serious: Yes (Hospitalization)
  Sender: FDA-Public Use
  Company Number: GR-BAYER-2011-018038

PATIENT
  Sex: Male
  Weight: 70 kg

DRUGS (1)
  1. NEXAVAR [Suspect]
     Indication: HEPATIC NEOPLASM MALIGNANT
     Dosage: 400 MG, BID
     Route: 048
     Dates: start: 20110111, end: 20110128

REACTIONS (5)
  - VOMITING [None]
  - CACHEXIA [None]
  - PERFORMANCE STATUS DECREASED [None]
  - DECREASED APPETITE [None]
  - FATIGUE [None]
